FAERS Safety Report 8536931 (Version 2)
Quarter: 2013Q1

REPORT INFORMATION
  Report Type: Spontaneous
  Country: US (occurrence: None)
  Receive Date: 20120419
  Receipt Date: 20130123
  Transmission Date: 20140127
  Serious: Yes (Hospitalization)
  Sender: FDA-Public Use
  Company Number: 2010US002833

PATIENT
  Age: 8 Year
  Sex: Female

DRUGS (7)
  1. TACROLIMUS [Suspect]
     Indication: DERMATITIS ATOPIC
     Dosage: 0.1%,   TOPICAL
     Route: 061
     Dates: start: 20040301
  2. ALBUTEROL?/00139501/ (SALBUTAMOL) [Concomitant]
  3. ORAPRED (PREDNISOLONE SODIUM PHOSPHATE) [Concomitant]
  4. FOCALIN (DEXMETHYLPHENIDATE HYDROCHLORIDE) [Concomitant]
  5. PROZAC (FLUOXETINE HYDROCHLORIDE) [Concomitant]
  6. XOPENEX (LEVOSALBUTAMOL HYDROCHLORIDE) [Concomitant]
  7. PROAIR?/00139502/ (SALBUTAMOL SULFATE) [Concomitant]

REACTIONS (2)
  - Asthma [None]
  - Off label use [None]
